FAERS Safety Report 19483071 (Version 2)
Quarter: 2024Q4

REPORT INFORMATION
  Report Type: Spontaneous
  Country: TW (occurrence: TW)
  Receive Date: 20210701
  Receipt Date: 20241230
  Transmission Date: 20250115
  Serious: Yes (Hospitalization, Other)
  Sender: PFIZER
  Company Number: TW-MLMSERVICE-20210617-2952505-1

PATIENT
  Age: 57 Year
  Sex: Female

DRUGS (1)
  1. METRONIDAZOLE [Suspect]
     Active Substance: METRONIDAZOLE
     Indication: Vaginal infection
     Dosage: 1000 MG, DAILY (1 WEEK FOR VAGINITIS 1,000 MG/DAY)

REACTIONS (3)
  - Optic neuropathy [Not Recovered/Not Resolved]
  - Myelitis [Not Recovered/Not Resolved]
  - Neurotoxicity [Unknown]
